FAERS Safety Report 17015134 (Version 8)
Quarter: 2020Q3

REPORT INFORMATION
  Report Type: Spontaneous
  Country: US (occurrence: US)
  Receive Date: 20191111
  Receipt Date: 20200917
  Transmission Date: 20201102
  Serious: Yes (Other)
  Sender: FDA-Public Use
  Company Number: US-AUROBINDO-AUR-APL-2019-064936

PATIENT
  Age: 70 Year
  Sex: Female
  Weight: 46 kg

DRUGS (5)
  1. RAMIPRIL. [Concomitant]
     Active Substance: RAMIPRIL
     Indication: BLOOD PRESSURE MEASUREMENT
     Dosage: UNK
     Route: 065
  2. METOPROLOL. [Suspect]
     Active Substance: METOPROLOL
     Indication: PRODUCT USED FOR UNKNOWN INDICATION
     Dosage: UNK
     Route: 065
     Dates: end: 20190605
  3. HYDROCHLOORTHIAZIDE [Suspect]
     Active Substance: HYDROCHLOROTHIAZIDE
     Dosage: 12.5 MILLIGRAM, ONCE A DAY AS NEEDED
     Route: 065
  4. LORAZEPAM. [Concomitant]
     Active Substance: LORAZEPAM
     Indication: PRODUCT USED FOR UNKNOWN INDICATION
     Dosage: 0.5 MILLIGRAM
     Route: 065
  5. HYDROCHLOORTHIAZIDE [Suspect]
     Active Substance: HYDROCHLOROTHIAZIDE
     Indication: HYPERTENSION
     Dosage: 25 MILLIGRAM
     Route: 065

REACTIONS (19)
  - Abdominal pain upper [Not Recovered/Not Resolved]
  - Anaemia [Unknown]
  - Tendonitis [Unknown]
  - Treatment noncompliance [Unknown]
  - Asthma [Unknown]
  - Vomiting [Unknown]
  - Onychomadesis [Not Recovered/Not Resolved]
  - Nausea [Unknown]
  - Hypoaesthesia [Not Recovered/Not Resolved]
  - Neuropathy peripheral [Unknown]
  - Abdominal distension [Unknown]
  - Rash [Not Recovered/Not Resolved]
  - Musculoskeletal discomfort [Unknown]
  - Stevens-Johnson syndrome [Not Recovered/Not Resolved]
  - Alopecia [Recovering/Resolving]
  - Ligamentitis [Unknown]
  - Visual impairment [Unknown]
  - Drug ineffective [Unknown]
  - Cholelithiasis [Recovered/Resolved]
